FAERS Safety Report 14469671 (Version 4)
Quarter: 2018Q2

REPORT INFORMATION
  Report Type: Spontaneous
  Country: CA (occurrence: CA)
  Receive Date: 20180131
  Receipt Date: 20180524
  Transmission Date: 20180711
  Serious: Yes (Hospitalization, Disabling, Other)
  Sender: FDA-Public Use
  Company Number: CA-CELLTRION INC.-2017CA012622

PATIENT

DRUGS (9)
  1. INFLIXIMAB PFIZER (UNKNOWN) [Suspect]
     Active Substance: INFLIXIMAB
     Dosage: 425 MG, CYCLIC, THEN EVERY 8 WEEKS
     Route: 042
     Dates: start: 20171129
  2. INFLIXIMAB PFIZER (UNKNOWN) [Suspect]
     Active Substance: INFLIXIMAB
     Indication: CROHN^S DISEASE
     Dosage: 425 MG, CYCLIC, THEN EVERY 8 WEEKS
     Route: 042
     Dates: start: 20170821
  3. INFLIXIMAB PFIZER (UNKNOWN) [Suspect]
     Active Substance: INFLIXIMAB
     Dosage: 425 MG, CYCLIC, THEN EVERY 8 WEEKS
     Route: 042
     Dates: start: 20171002
  4. INFLIXIMAB PFIZER (UNKNOWN) [Suspect]
     Active Substance: INFLIXIMAB
     Dosage: 425 MG, CYCLIC, THEN EVERY 8 WEEKS
     Route: 042
     Dates: start: 20180124
  5. PREDNISONE. [Concomitant]
     Active Substance: PREDNISONE
     Dosage: 5 MG, UNK
  6. VITAMIN D [Concomitant]
     Active Substance: CHOLECALCIFEROL
     Dosage: UNK
  7. NEXIUM [Concomitant]
     Active Substance: ESOMEPRAZOLE MAGNESIUM
     Dosage: UNK
  8. VITAMIN C [Concomitant]
     Active Substance: ASCORBIC ACID
     Dosage: UNK
  9. INFLIXIMAB PFIZER (UNKNOWN) [Suspect]
     Active Substance: INFLIXIMAB
     Dosage: 425 MG, CYCLIC, THEN EVERY 8 WEEKS
     Route: 042
     Dates: start: 20180322

REACTIONS (4)
  - Condition aggravated [Recovering/Resolving]
  - Product use issue [Unknown]
  - Crohn^s disease [Recovering/Resolving]
  - Therapeutic response shortened [Unknown]
